FAERS Safety Report 5001356-1 (Version None)
Quarter: 2006Q2

REPORT INFORMATION
  Report Type: 
  Country: None (occurrence: None)
  Receive Date: 20060512
  Receipt Date: 20060511
  Transmission Date: 20061013
  Serious: Yes (Other)
  Sender: FDA-Public Use
  Company Number: ES-MERCK-0605ESP00018

PATIENT
  Age: 60 Year
  Sex: Female
  Weight: 65 kg

DRUGS (1)
  1. FOSAMAX [Suspect]
     Route: 048
     Dates: start: 20051101, end: 20051201

REACTIONS (1)
  - GENERALISED OEDEMA [None]
